FAERS Safety Report 9893769 (Version 1)
Quarter: 2014Q1

REPORT INFORMATION
  Report Type: Spontaneous
  Country: US (occurrence: US)
  Receive Date: 20140213
  Receipt Date: 20140213
  Transmission Date: 20141002
  Serious: Yes (Other)
  Sender: FDA-Public Use
  Company Number: US-ASTRAZENECA-2014SE08870

PATIENT
  Sex: 0

DRUGS (1)
  1. SEROQUEL XR [Suspect]
     Route: 048
     Dates: start: 2013

REACTIONS (4)
  - Papilloedema [Unknown]
  - Ear pain [Unknown]
  - Headache [Unknown]
  - Vision blurred [Unknown]
